FAERS Safety Report 7450442-5 (Version None)
Quarter: 2011Q2

REPORT INFORMATION
  Report Type: 
  Country: None (occurrence: None)
  Receive Date: 20110502
  Receipt Date: 20110426
  Transmission Date: 20111010
  Serious: Yes (Life-Threatening)
  Sender: FDA-Public Use
  Company Number: JP-ASTRAZENECA-2011SE21195

PATIENT
  Age: 21661 Day
  Sex: Female
  Weight: 60 kg

DRUGS (7)
  1. XYLOCAINE [Suspect]
     Route: 037
     Dates: start: 20110411, end: 20110411
  2. ESLAX [Suspect]
     Indication: HYPOTONIA
     Route: 042
     Dates: start: 20110411, end: 20110411
  3. DIPRIVAN [Suspect]
     Indication: INDUCTION AND MAINTENANCE OF ANAESTHESIA
     Dosage: 870 MG, TARGET BLOOD LEVEL: 1.6-20 MCG/ML
     Route: 042
     Dates: start: 20110411, end: 20110411
  4. ULTIVA [Suspect]
     Indication: ANALGESIC THERAPY
     Route: 042
     Dates: start: 20110411, end: 20110411
  5. FENTANYL [Suspect]
     Indication: ANALGESIC THERAPY
     Route: 042
     Dates: start: 20110411, end: 20110411
  6. CEFMETAZOLE NA [Suspect]
     Route: 041
     Dates: start: 20110411, end: 20110411
  7. EPHEDRIN [Suspect]
     Route: 042
     Dates: start: 20110411, end: 20110411

REACTIONS (2)
  - BLOOD PRESSURE DECREASED [None]
  - ANAPHYLACTIC SHOCK [None]
